FAERS Safety Report 20281589 (Version 1)
Quarter: 2022Q1

REPORT INFORMATION
  Report Type: Spontaneous
  Country: US (occurrence: None)
  Receive Date: 20220101
  Receipt Date: 20220101
  Transmission Date: 20220423
  Serious: Yes (Hospitalization)
  Sender: FDA-Public Use
  Company Number: None

PATIENT
  Age: 47 Year
  Sex: Male
  Weight: 119.2 kg

DRUGS (1)
  1. BARICITINIB [Suspect]
     Active Substance: BARICITINIB
     Indication: COVID-19
     Dosage: FREQUENCY : DAILY;?
     Route: 048
     Dates: start: 20211219, end: 20211225

REACTIONS (10)
  - Condition aggravated [None]
  - Cough [None]
  - Dyspnoea [None]
  - Arthralgia [None]
  - Myalgia [None]
  - Pyrexia [None]
  - Drug ineffective [None]
  - Hypoxia [None]
  - Pneumonia staphylococcal [None]
  - Acute kidney injury [None]

NARRATIVE: CASE EVENT DATE: 20211224
